FAERS Safety Report 7127840-2 (Version None)
Quarter: 2010Q4

REPORT INFORMATION
  Report Type: 
  Country: None (occurrence: None)
  Receive Date: 20101029
  Receipt Date: 20100630
  Transmission Date: 20110411
  Serious: Yes (Hospitalization)
  Sender: FDA-Public Use
  Company Number: HU-002401

PATIENT
  Sex: Male
  Weight: 78 kg

DRUGS (7)
  1. DEGARELIX (DEGARELIX) (240 MG, 80 MG, 80 MG) [Suspect]
     Indication: PROSTATE CANCER
     Dosage: (240 MG 1X SUBCUTANEOUS), (80 MG 1X/MONTH SUBCUTANEOUS)
     Route: 058
     Dates: start: 20060425, end: 20060425
  2. DEGARELIX (DEGARELIX) (240 MG, 80 MG, 80 MG) [Suspect]
     Indication: PROSTATE CANCER
     Dosage: (240 MG 1X SUBCUTANEOUS), (80 MG 1X/MONTH SUBCUTANEOUS)
     Route: 058
     Dates: start: 20060523, end: 20070403
  3. DEGARELIX (DEGARELIX) (240 MG, 80 MG, 80 MG) [Suspect]
     Indication: PROSTATE CANCER
     Dosage: (240 MG 1X SUBCUTANEOUS), (80 MG 1X/MONTH SUBCUTANEOUS)
     Route: 058
     Dates: start: 20070425
  4. PERINDOPRIL [Concomitant]
  5. LEVEMIR [Concomitant]
  6. NOVORAPID [Concomitant]
  7. QUAMATEL [Concomitant]

REACTIONS (1)
  - GASTRIC NEOPLASM [None]
